FAERS Safety Report 23682164 (Version 2)
Quarter: 2025Q3

REPORT INFORMATION
  Report Type: Spontaneous
  Country: RU (occurrence: RU)
  Receive Date: 20240328
  Receipt Date: 20250714
  Transmission Date: 20251020
  Serious: Yes (Other)
  Sender: ROCHE
  Company Number: RU-ROCHE-3531051

PATIENT
  Age: 57 Year
  Sex: Female

DRUGS (6)
  1. TRASTUZUMAB [Suspect]
     Active Substance: TRASTUZUMAB
     Indication: Breast cancer stage II
     Dosage: LOADING DOSE 8 MG/KG ON DAY 1
     Route: 042
     Dates: start: 20201009, end: 20210127
  2. TRASTUZUMAB [Suspect]
     Active Substance: TRASTUZUMAB
     Dosage: 6 MG/KG
     Route: 065
     Dates: end: 20210929
  3. PERTUZUMAB [Suspect]
     Active Substance: PERTUZUMAB
     Indication: Breast cancer stage II
     Dosage: (LOADING DOSE 840 MG) ON DAY 1; CYCLE DURATION 21 DAYS
     Route: 065
     Dates: start: 20201009, end: 20210127
  4. ADO-TRASTUZUMAB EMTANSINE [Suspect]
     Active Substance: ADO-TRASTUZUMAB EMTANSINE
     Indication: Breast cancer stage II
     Dosage: 3.6 MG/KG - 223 MG IV DRIP ON DAY 1.
     Route: 042
     Dates: start: 20220913, end: 20250710
  5. CARBOPLATIN [Suspect]
     Active Substance: CARBOPLATIN
     Indication: Breast cancer stage II
     Route: 065
     Dates: start: 20201009, end: 20210127
  6. DOCETAXEL [Suspect]
     Active Substance: DOCETAXEL
     Indication: Breast cancer stage II
     Route: 065
     Dates: start: 20201009, end: 20210127

REACTIONS (8)
  - Metastases to adrenals [Unknown]
  - Ejection fraction abnormal [Unknown]
  - Disease progression [Unknown]
  - Vascular encephalopathy [Unknown]
  - Cerebral atrophy [Unknown]
  - Hydrocephalus [Unknown]
  - Pulmonary fibrosis [Unknown]
  - Cerebellar atrophy [Unknown]
